FAERS Safety Report 8991826 (Version 1)
Quarter: 2012Q4

REPORT INFORMATION
  Report Type: 
  Country: US (occurrence: US)
  Receive Date: 20121231
  Receipt Date: 20121231
  Transmission Date: 20130627
  Serious: Yes (Other)
  Sender: FDA-Public Use
  Company Number: CHPA2012US025612

PATIENT
  Age: 81 Year
  Sex: Female

DRUGS (1)
  1. EXCEDRIN MIGRAINE [Suspect]
     Indication: SINUS HEADACHE
     Dosage: 1 DF as needed
     Route: 048
     Dates: start: 2010

REACTIONS (4)
  - Sinusitis [Not Recovered/Not Resolved]
  - Sleep apnoea syndrome [Not Recovered/Not Resolved]
  - Off label use [Unknown]
  - Underdose [Unknown]
